FAERS Safety Report 18297169 (Version 1)
Quarter: 2020Q3

REPORT INFORMATION
  Report Type: Spontaneous
  Country: FR (occurrence: FR)
  Receive Date: 20200923
  Receipt Date: 20200923
  Transmission Date: 20201103
  Serious: Yes (Other)
  Sender: FDA-Public Use
  Company Number: FR-AUROBINDO-AUR-APL-2020-048777

PATIENT
  Age: 44 Year
  Sex: Male

DRUGS (4)
  1. LOXAPINE SUCCINATE. [Interacting]
     Active Substance: LOXAPINE SUCCINATE
     Indication: PSYCHOTIC DISORDER
     Dosage: 150 MILLIGRAM, ONCE A DAY (50 MG?50MG?50MG?50MG AND 100 MG AS NEEDED AT BEDTIME)
     Route: 048
     Dates: start: 2018, end: 20200902
  2. CLOPIXOL [Interacting]
     Active Substance: ZUCLOPENTHIXOL
     Indication: SCHIZOPHRENIA
     Dosage: 150 MILLIGRAM, ONCE A DAY (50MG?25MG?50MG?0)
     Route: 048
     Dates: start: 2018, end: 20200724
  3. DIAZEPAM. [Interacting]
     Active Substance: DIAZEPAM
     Indication: PSYCHOTIC DISORDER
     Dosage: 30 MILLIGRAM, ONCE A DAY
     Route: 048
     Dates: start: 2018, end: 20200724
  4. CLOZAPINE. [Suspect]
     Active Substance: CLOZAPINE
     Indication: SCHIZOPHRENIA
     Dosage: 300 MILLIGRAM, TWO TIMES A DAY
     Route: 048
     Dates: start: 2018

REACTIONS (5)
  - Somnolence [Recovering/Resolving]
  - Weight increased [Recovering/Resolving]
  - Salivary hypersecretion [Recovering/Resolving]
  - Akathisia [Recovered/Resolved]
  - Dysarthria [Not Recovered/Not Resolved]

NARRATIVE: CASE EVENT DATE: 201905
